FAERS Safety Report 25492429 (Version 2)
Quarter: 2025Q3

REPORT INFORMATION
  Report Type: Spontaneous
  Country: US (occurrence: US)
  Receive Date: 20250630
  Receipt Date: 20250929
  Transmission Date: 20251020
  Serious: Yes (Other)
  Sender: BRISTOL-MYERS SQUIBB COMPANY
  Company Number: US-BRISTOL-MYERS SQUIBB COMPANY-2025-091688

PATIENT
  Age: 29 Year
  Sex: Female

DRUGS (4)
  1. NIVOLUMAB [Suspect]
     Active Substance: NIVOLUMAB
     Indication: Product used for unknown indication
     Dosage: ROUTE: INFUSION, FREQ: EVERY OTHER WEEK
     Dates: start: 20241015, end: 20250318
  2. DOXORUBICIN [Suspect]
     Active Substance: DOXORUBICIN
     Indication: Product used for unknown indication
     Dosage: ROUTE: INFUSION, FREQ: EVERY OTHER WEEK
     Dates: start: 20241015, end: 20250318
  3. VINBLASTINE [Suspect]
     Active Substance: VINBLASTINE
     Indication: Product used for unknown indication
     Dosage: ROUTE: INFUSION, FREQ: EVERY OTHER WEEK
     Dates: start: 20241015, end: 20250318
  4. DACARBAZINE [Suspect]
     Active Substance: DACARBAZINE
     Indication: Product used for unknown indication
     Dosage: ROUTE: INFUSION, FREQ: EVERY OTHER WEEK
     Dates: start: 20241015, end: 20250318

REACTIONS (4)
  - Food aversion [Unknown]
  - Fatigue [Unknown]
  - Alopecia [Unknown]
  - Immune system disorder [Unknown]
